FAERS Safety Report 17560755 (Version 1)
Quarter: 2020Q1

REPORT INFORMATION
  Report Type: Spontaneous
  Country: PL (occurrence: PL)
  Receive Date: 20200319
  Receipt Date: 20200319
  Transmission Date: 20200409
  Serious: Yes (Other)
  Sender: FDA-Public Use
  Company Number: PL-PFIZER INC-2020114293

PATIENT
  Age: 39 Year
  Sex: Female
  Weight: 55 kg

DRUGS (4)
  1. NEURONTIN [Suspect]
     Active Substance: GABAPENTIN
     Indication: FACIAL NEURALGIA
     Dosage: 100 MG, 1X/DAY
     Route: 048
     Dates: start: 201811
  2. AIMOVIG [Suspect]
     Active Substance: ERENUMAB-AOOE
     Indication: MIGRAINE
     Dosage: 70 MG, UNK
     Route: 058
     Dates: start: 20190130, end: 20190130
  3. AMIZEPIN [Suspect]
     Active Substance: CARBAMAZEPINE
     Dosage: 200 MG, 1X/DAY (ADMINISTRATION IN THE EVENING
     Route: 048
     Dates: start: 201811
  4. AMIZEPIN [Suspect]
     Active Substance: CARBAMAZEPINE
     Indication: NEURALGIA
     Dosage: 100 MG, 1X/DAY (MORNING ADMINISTRATION)
     Route: 048
     Dates: start: 201811

REACTIONS (5)
  - Gait disturbance [Recovering/Resolving]
  - Pain [Recovering/Resolving]
  - Hypoaesthesia [Recovering/Resolving]
  - Muscle spasms [Recovering/Resolving]
  - Limb discomfort [Recovering/Resolving]

NARRATIVE: CASE EVENT DATE: 20190204
